FAERS Safety Report 9902369 (Version 2)
Quarter: 2014Q1

REPORT INFORMATION
  Report Type: Spontaneous
  Country: US (occurrence: US)
  Receive Date: 20140217
  Receipt Date: 20140217
  Transmission Date: 20141002
  Serious: Yes (Hospitalization)
  Sender: FDA-Public Use
  Company Number: US-GILEAD-2011-0044425

PATIENT
  Age: 83 Year
  Sex: Male

DRUGS (3)
  1. LETAIRIS [Suspect]
     Indication: PULMONARY HYPERTENSION
     Dosage: 10 MG, UNK
     Route: 048
     Dates: start: 20110518
  2. LETAIRIS [Suspect]
     Indication: CHRONIC OBSTRUCTIVE PULMONARY DISEASE
  3. LETAIRIS [Suspect]
     Indication: DIASTOLIC DYSFUNCTION

REACTIONS (1)
  - Dyspnoea [Unknown]
